FAERS Safety Report 17544496 (Version 1)
Quarter: 2020Q1

REPORT INFORMATION
  Report Type: Spontaneous
  Country: DE (occurrence: DE)
  Receive Date: 20200316
  Receipt Date: 20200316
  Transmission Date: 20200409
  Serious: Yes (Other)
  Sender: FDA-Public Use
  Company Number: NVSC2020DE066959

PATIENT
  Age: 58 Year
  Sex: Female

DRUGS (11)
  1. PREDNISOLON [Suspect]
     Active Substance: PREDNISOLONE
     Dosage: 70 MG, QD
     Route: 048
     Dates: start: 2019
  2. NOVAMINSULFON [Concomitant]
     Active Substance: METAMIZOLE
     Indication: PRODUCT USED FOR UNKNOWN INDICATION
     Dosage: UNK
     Route: 065
  3. PREDNISOLON [Suspect]
     Active Substance: PREDNISOLONE
     Indication: SMALL INTESTINAL OBSTRUCTION
     Dosage: UNK
     Route: 065
     Dates: start: 2019
  4. PREDNISOLON [Suspect]
     Active Substance: PREDNISOLONE
     Indication: SMALL INTESTINAL OBSTRUCTION
     Dosage: 30 MG, QD
     Route: 048
     Dates: start: 2019
  5. PREDNISOLON [Suspect]
     Active Substance: PREDNISOLONE
     Dosage: 50 MG, QD
     Route: 048
     Dates: start: 2019
  6. PREDNISOLONE. [Suspect]
     Active Substance: PREDNISOLONE
     Indication: IMPAIRED GASTRIC EMPTYING
     Dosage: UNK
     Route: 048
     Dates: start: 2019
  7. PREDNISOLON [Suspect]
     Active Substance: PREDNISOLONE
     Indication: IMPAIRED GASTRIC EMPTYING
  8. KALINOR RETARD P [Concomitant]
     Active Substance: POTASSIUM CHLORIDE
     Indication: PRODUCT USED FOR UNKNOWN INDICATION
     Dosage: UNK
     Route: 065
  9. PREDNISOLONE. [Suspect]
     Active Substance: PREDNISOLONE
     Indication: SMALL INTESTINAL OBSTRUCTION
  10. PREDNISOLON [Suspect]
     Active Substance: PREDNISOLONE
     Indication: IMPAIRED GASTRIC EMPTYING
     Dosage: 40 MG, QD
     Route: 048
     Dates: start: 2019
  11. PANTOPRAZOL ARISTO [Concomitant]
     Active Substance: PANTOPRAZOLE SODIUM
     Indication: PRODUCT USED FOR UNKNOWN INDICATION
     Dosage: UNK
     Route: 065

REACTIONS (5)
  - Product use in unapproved indication [Unknown]
  - Off label use [Unknown]
  - Spinal fracture [Not Recovered/Not Resolved]
  - Myalgia [Not Recovered/Not Resolved]
  - Trigeminal nerve disorder [Not Recovered/Not Resolved]

NARRATIVE: CASE EVENT DATE: 201911
